FAERS Safety Report 4940527-7 (Version None)
Quarter: 2006Q1

REPORT INFORMATION
  Report Type: 
  Country: None (occurrence: None)
  Receive Date: 20060112
  Receipt Date: 20051027
  Transmission Date: 20060701
  Serious: Yes (Hospitalization)
  Sender: FDA-Public Use
  Company Number: 422846

PATIENT

DRUGS (4)
  1. FUZEON [Suspect]
     Indication: HIV INFECTION
     Dosage: OTHER
     Route: 050
  2. RESCRIPTOR [Suspect]
     Indication: HIV INFECTION
  3. DRUG [Suspect]
     Indication: HIV INFECTION
  4. RITONAVIR (RITONAVIR) [Suspect]
     Indication: HIV INFECTION

REACTIONS (1)
  - RENAL FAILURE ACUTE [None]
